FAERS Safety Report 24250846 (Version 1)
Quarter: 2024Q3

REPORT INFORMATION
  Report Type: Spontaneous
  Country: US (occurrence: US)
  Receive Date: 20240826
  Receipt Date: 20240826
  Transmission Date: 20241017
  Serious: No
  Sender: FERA
  Company Number: US-FERAPHARMA-2024-US-001744

PATIENT
  Age: 86 Year
  Sex: Female
  Weight: 53.98 kg

DRUGS (2)
  1. ECHOTHIOPHATE IODIDE [Suspect]
     Active Substance: ECHOTHIOPHATE IODIDE
     Indication: Product used for unknown indication
     Dosage: 1 DROP IN EACH EYE TWICE DAILY
     Dates: start: 20240111, end: 20240113
  2. VYZULTA [Concomitant]
     Active Substance: LATANOPROSTENE BUNOD

REACTIONS (8)
  - Ocular hyperaemia [Recovering/Resolving]
  - Condition aggravated [Recovering/Resolving]
  - Photophobia [Recovering/Resolving]
  - Eye inflammation [Recovering/Resolving]
  - Eye pain [Recovering/Resolving]
  - Eye irritation [Recovering/Resolving]
  - Headache [Recovering/Resolving]
  - Vision blurred [Recovering/Resolving]

NARRATIVE: CASE EVENT DATE: 20240113
